FAERS Safety Report 9950358 (Version 1)
Quarter: 2014Q1

REPORT INFORMATION
  Report Type: Report from Study
  Country: US (occurrence: US)
  Receive Date: 20140304
  Receipt Date: 20140304
  Transmission Date: 20141002
  Serious: No
  Sender: FDA-Public Use
  Company Number: US-ABBVIE-13P-163-1072312-00

PATIENT
  Age: 38 Year
  Sex: Female

DRUGS (7)
  1. HUMIRA [Suspect]
     Indication: PSORIATIC ARTHROPATHY
     Route: 058
     Dates: start: 20130318
  2. HUMIRA [Suspect]
     Indication: PSORIASIS
  3. METHOTREXATE [Concomitant]
     Indication: PSORIATIC ARTHROPATHY
     Dosage: ONCE A WEEK
     Route: 048
  4. METHOTREXATE [Concomitant]
     Indication: PSORIASIS
  5. FOLIC ACID [Concomitant]
     Indication: PSORIATIC ARTHROPATHY
     Dosage: 1 MG DAILY EXCEPT ON DAYS METHOTREXATE IS TAKEN
     Route: 048
  6. FOLIC ACID [Concomitant]
     Indication: PSORIASIS
  7. WELLBUTRIN [Concomitant]
     Indication: DEPRESSION
     Dosage: DAILY

REACTIONS (1)
  - Injection site pain [Recovered/Resolved]
